FAERS Safety Report 13257655 (Version 1)
Quarter: 2017Q1

REPORT INFORMATION
  Report Type: Spontaneous
  Country: IE (occurrence: IE)
  Receive Date: 20170221
  Receipt Date: 20170221
  Transmission Date: 20170428
  Serious: Yes (Other)
  Sender: FDA-Public Use
  Company Number: IE-MYLANLABS-2017M1010521

PATIENT

DRUGS (1)
  1. CLOZARIL [Suspect]
     Active Substance: CLOZAPINE
     Indication: SCHIZOPHRENIA
     Dosage: UNK
     Route: 048
     Dates: start: 20141128

REACTIONS (6)
  - Blood bilirubin decreased [Unknown]
  - Blood creatinine increased [Unknown]
  - Blood thyroid stimulating hormone increased [Unknown]
  - Glomerular filtration rate decreased [Unknown]
  - Urinary tract infection [Unknown]
  - Blood cholesterol decreased [Unknown]

NARRATIVE: CASE EVENT DATE: 20170214
